FAERS Safety Report 14513396 (Version 1)
Quarter: 2018Q1

REPORT INFORMATION
  Report Type: Spontaneous
  Country: US (occurrence: US)
  Receive Date: 20180209
  Receipt Date: 20180209
  Transmission Date: 20180509
  Serious: No
  Sender: FDA-Public Use
  Company Number: US-ALLERGAN-1704123US

PATIENT
  Sex: Female

DRUGS (1)
  1. RESTASIS [Suspect]
     Active Substance: CYCLOSPORINE
     Indication: SJOGREN^S SYNDROME
     Dosage: UNK
     Route: 047
     Dates: end: 201611

REACTIONS (3)
  - Drug dose omission [Unknown]
  - Madarosis [Not Recovered/Not Resolved]
  - Eye swelling [Not Recovered/Not Resolved]
